FAERS Safety Report 8173135-8 (Version None)
Quarter: 2012Q1

REPORT INFORMATION
  Report Type: 
  Country: None (occurrence: None)
  Receive Date: 20120229
  Receipt Date: 20110126
  Transmission Date: 20120608
  Serious: No
  Sender: FDA-Public Use
  Company Number: US-GLAXOSMITHKLINE-A0910231A

PATIENT
  Sex: Female

DRUGS (2)
  1. IMITREX [Suspect]
     Indication: PRODUCT USED FOR UNKNOWN INDICATION
     Dosage: 6MG AS DIRECTED
     Route: 058
  2. GSK AUTOINJECTOR [Suspect]
     Route: 058

REACTIONS (2)
  - DRUG DISPENSING ERROR [None]
  - PRODUCT QUALITY ISSUE [None]
